FAERS Safety Report 5885113-X (Version None)
Quarter: 2008Q3

REPORT INFORMATION
  Report Type: 
  Country: None (occurrence: None)
  Receive Date: 20080916
  Receipt Date: 20080911
  Transmission Date: 20090109
  Serious: Yes (Other)
  Sender: FDA-Public Use
  Company Number: US-MERCK-0809USA01229

PATIENT
  Age: 36 Year
  Sex: Male
  Weight: 96 kg

DRUGS (1)
  1. VYTORIN [Suspect]
     Indication: BLOOD CHOLESTEROL INCREASED
     Route: 048
     Dates: start: 20080904, end: 20080908

REACTIONS (1)
  - ANAPHYLACTIC SHOCK [None]
